FAERS Safety Report 13906417 (Version 1)
Quarter: 2017Q3

REPORT INFORMATION
  Report Type: Report from Study
  Country: FR (occurrence: FR)
  Receive Date: 20170825
  Receipt Date: 20170825
  Transmission Date: 20171127
  Serious: Yes (Hospitalization, Other)
  Sender: FDA-Public Use
  Company Number: FR-BAYER-2017-147006

PATIENT
  Age: 12 Year
  Sex: Male
  Weight: 39 kg

DRUGS (2)
  1. KOGENATE [Suspect]
     Active Substance: ANTIHEMOPHILIC FACTOR, HUMAN RECOMBINANT
     Indication: FACTOR VIII DEFICIENCY
     Dosage: INJECTIONS ONE EVERY TWO DAYS (TREATMENT)
  2. KOGENATE [Suspect]
     Active Substance: ANTIHEMOPHILIC FACTOR, HUMAN RECOMBINANT
     Indication: FACTOR VIII DEFICIENCY
     Dosage: 2000 U, QD (PROPHYLAXIS)

REACTIONS (4)
  - Contusion [Recovering/Resolving]
  - Haematoma [Recovered/Resolved]
  - Haemorrhage [Recovered/Resolved]
  - Arthralgia [None]
